FAERS Safety Report 24449019 (Version 1)
Quarter: 2024Q4

REPORT INFORMATION
  Report Type: Spontaneous
  Country: QA (occurrence: QA)
  Receive Date: 20241017
  Receipt Date: 20241017
  Transmission Date: 20250115
  Serious: Yes (Life-Threatening, Hospitalization, Other)
  Sender: ROCHE
  Company Number: QA-ROCHE-RCA5132196

PATIENT
  Age: 40 Year
  Sex: Male

DRUGS (1)
  1. ALTEPLASE [Suspect]
     Active Substance: ALTEPLASE
     Indication: Product used for unknown indication
     Route: 065

REACTIONS (5)
  - Vertebrobasilar artery dissection [Recovering/Resolving]
  - Carotid artery occlusion [Recovering/Resolving]
  - Generalised tonic-clonic seizure [Recovering/Resolving]
  - Vertebral artery stenosis [Recovering/Resolving]
  - Cerebral disorder [Recovering/Resolving]
